FAERS Safety Report 8578781-5 (Version None)
Quarter: 2012Q3

REPORT INFORMATION
  Report Type: 
  Country: None (occurrence: None)
  Receive Date: 20120808
  Receipt Date: 20120724
  Transmission Date: 20120928
  Serious: Yes (Other)
  Sender: FDA-Public Use
  Company Number: BR-AMGEN-BRACT2011048135

PATIENT
  Age: 59 Year
  Sex: Female
  Weight: 72 kg

DRUGS (3)
  1. ETANERCEPT [Suspect]
     Indication: RHEUMATOID ARTHRITIS
     Dosage: 50 MG, UNK
     Route: 058
  2. ANGELIQ [Concomitant]
     Dosage: UNK
  3. ETANERCEPT [Suspect]
     Dosage: 50 MG, ONCE WEEKLY
     Route: 058
     Dates: start: 20080901, end: 20120201

REACTIONS (11)
  - INJECTION SITE PRURITUS [None]
  - DRUG INEFFECTIVE [None]
  - HYPERSENSITIVITY [None]
  - INJECTION SITE INDURATION [None]
  - INJECTION SITE ERYTHEMA [None]
  - ANAPHYLACTIC SHOCK [None]
  - CONFUSIONAL STATE [None]
  - FIBROCYSTIC BREAST DISEASE [None]
  - SWOLLEN TONGUE [None]
  - BLOOD PRESSURE DECREASED [None]
  - INJECTION SITE PAIN [None]
